FAERS Safety Report 6616731-9 (Version None)
Quarter: 2010Q1

REPORT INFORMATION
  Report Type: 
  Country: None (occurrence: None)
  Receive Date: 20100305
  Receipt Date: 20100226
  Transmission Date: 20100710
  Serious: Yes (Death)
  Sender: FDA-Public Use
  Company Number: JP-PFIZER INC-2010026063

PATIENT
  Age: 41 Year
  Sex: Male
  Weight: 49.2 kg

DRUGS (4)
  1. SILDENAFIL CITRATE [Suspect]
     Indication: PULMONARY ARTERIAL HYPERTENSION
     Dosage: 40 MG/DAY 3X/DAY
     Route: 048
     Dates: start: 20090829
  2. SILDENAFIL CITRATE [Suspect]
     Dosage: 30 MG/DAY 3X/DAY
     Dates: start: 20090826, end: 20090828
  3. SILDENAFIL CITRATE [Suspect]
     Dosage: 20 MG/DAY 2X/DAY
     Dates: start: 20090820, end: 20090825
  4. FLOLAN [Concomitant]
     Indication: PULMONARY ARTERIAL HYPERTENSION
     Dosage: UNK
     Route: 042
     Dates: start: 20090831

REACTIONS (1)
  - DEATH [None]
